FAERS Safety Report 10789063 (Version 1)
Quarter: 2015Q1

REPORT INFORMATION
  Report Type: Spontaneous
  Country: NG (occurrence: None)
  Receive Date: 20150211
  Receipt Date: 20150211
  Transmission Date: 20150721
  Serious: Yes (Other)
  Sender: FDA-Public Use
  Company Number: None

PATIENT
  Age: 24 Year
  Sex: Female
  Weight: 77 kg

DRUGS (1)
  1. COARTEM [Suspect]
     Active Substance: ARTEMETHER\LUMEFANTRINE
     Indication: MALARIA
     Dosage: 6 TABLETS. 1 TABLET/DOSE ONCE DAILY TAKEN BY MOUTH
     Route: 048
     Dates: start: 20150209, end: 20150210

REACTIONS (3)
  - Dyskinesia [None]
  - Tremor [None]
  - Chills [None]

NARRATIVE: CASE EVENT DATE: 20150209
